FAERS Safety Report 24967987 (Version 1)
Quarter: 2025Q1

REPORT INFORMATION
  Report Type: Report from Study
  Country: CA (occurrence: CA)
  Receive Date: 20250214
  Receipt Date: 20250214
  Transmission Date: 20250408
  Serious: Yes (Hospitalization, Other)
  Sender: TAKEDA
  Company Number: CA-TAKEDA-2025TUS015060

PATIENT
  Age: 70 Year
  Sex: Male

DRUGS (10)
  1. VEDOLIZUMAB [Suspect]
     Active Substance: VEDOLIZUMAB
     Indication: Colitis ulcerative
  2. VEDOLIZUMAB [Suspect]
     Active Substance: VEDOLIZUMAB
     Dosage: 300 MILLIGRAM, Q4WEEKS
     Dates: start: 20230718
  3. PREDNISONE [Concomitant]
     Active Substance: PREDNISONE
  4. VITAMIN C [Concomitant]
     Active Substance: ASCORBIC ACID
  5. FISH OIL [Concomitant]
     Active Substance: FISH OIL
  6. APIXABAN [Concomitant]
     Active Substance: APIXABAN
  7. INDAPAMIDE [Concomitant]
     Active Substance: INDAPAMIDE
  8. METOPROLOL [Concomitant]
     Active Substance: METOPROLOL
  9. PRAVASTATIN [Concomitant]
     Active Substance: PRAVASTATIN
  10. TIOTROPIUM [Concomitant]
     Active Substance: TIOTROPIUM

REACTIONS (4)
  - COVID-19 [Recovered/Resolved]
  - Cardiac disorder [Recovered/Resolved]
  - Pneumonia [Recovered/Resolved]
  - Off label use [Unknown]

NARRATIVE: CASE EVENT DATE: 20230718
